FAERS Safety Report 8524560-4 (Version None)
Quarter: 2012Q3

REPORT INFORMATION
  Report Type: 
  Country: None (occurrence: None)
  Receive Date: 20120720
  Receipt Date: 20120711
  Transmission Date: 20120928
  Serious: Yes (Hospitalization)
  Sender: FDA-Public Use
  Company Number: CA-JNJFOC-20120705737

PATIENT
  Sex: Female
  Weight: 51 kg

DRUGS (3)
  1. REMICADE [Suspect]
     Route: 042
  2. REMICADE [Suspect]
     Route: 042
     Dates: start: 20120627
  3. REMICADE [Suspect]
     Indication: RHEUMATOID ARTHRITIS
     Route: 042
     Dates: start: 20120328

REACTIONS (3)
  - ANEURYSM [None]
  - CEREBROVASCULAR ACCIDENT [None]
  - CEREBRAL HAEMORRHAGE [None]
